FAERS Safety Report 18411860 (Version 1)
Quarter: 2020Q4

REPORT INFORMATION
  Report Type: Spontaneous
  Country: CA (occurrence: CA)
  Receive Date: 20201021
  Receipt Date: 20201021
  Transmission Date: 20210114
  Serious: Yes (Other)
  Sender: FDA-Public Use
  Company Number: CA-JNJFOC-20201027107

PATIENT
  Age: 49 Year
  Sex: Male

DRUGS (4)
  1. ASACOL [Concomitant]
     Active Substance: MESALAMINE
     Route: 065
  2. REMICADE [Concomitant]
     Active Substance: INFLIXIMAB
     Route: 042
  3. LOMOTIL                            /00384302/ [Concomitant]
     Active Substance: LOPERAMIDE HYDROCHLORIDE
     Route: 065
  4. INFLIXIMAB, RECOMBINANT [Suspect]
     Active Substance: INFLIXIMAB
     Indication: CROHN^S DISEASE
     Route: 042

REACTIONS (5)
  - Hypertension [Unknown]
  - Drug level decreased [Unknown]
  - Off label use [Unknown]
  - Condition aggravated [Unknown]
  - Inappropriate schedule of product administration [Unknown]
